FAERS Safety Report 7814927-1 (Version None)
Quarter: 2011Q4

REPORT INFORMATION
  Report Type: 
  Country: None (occurrence: None)
  Receive Date: 20111014
  Receipt Date: 20111010
  Transmission Date: 20120403
  Serious: Yes (Other)
  Sender: FDA-Public Use
  Company Number: US-SANOFI-AVENTIS-2011SA066720

PATIENT
  Sex: Female

DRUGS (2)
  1. ASPIRIN [Concomitant]
  2. PLAVIX [Suspect]
     Route: 048
     Dates: start: 20050101

REACTIONS (2)
  - CORONARY ARTERY BYPASS [None]
  - HIP SURGERY [None]
